FAERS Safety Report 7516253-7 (Version None)
Quarter: 2011Q2

REPORT INFORMATION
  Report Type: 
  Country: None (occurrence: None)
  Receive Date: 20110601
  Receipt Date: 20110523
  Transmission Date: 20111010
  Serious: Yes (Hospitalization, Disabling)
  Sender: FDA-Public Use
  Company Number: DE-AMGEN-DEUSP2011027310

PATIENT
  Age: 71 Year
  Sex: Female

DRUGS (2)
  1. ARAVA [Concomitant]
     Dosage: 35MG PER DAY
  2. ENBREL [Suspect]
     Indication: RHEUMATOID ARTHRITIS
     Dosage: 50 MG, WEEKLY
     Dates: start: 20070101, end: 20101101

REACTIONS (3)
  - INFLAMMATION [None]
  - ABSCESS INTESTINAL [None]
  - ILEUS [None]
